FAERS Safety Report 6493391-1 (Version None)
Quarter: 2009Q4

REPORT INFORMATION
  Report Type: 
  Country: None (occurrence: None)
  Receive Date: 20091211
  Receipt Date: 20091211
  Transmission Date: 20100525
  Serious: Yes (Other)
  Sender: FDA-Public Use
  Company Number: None

PATIENT
  Age: 55 Year
  Sex: Female
  Weight: 94.1 kg

DRUGS (1)
  1. CYMBALTA [Suspect]
     Indication: FIBROMYALGIA
     Dosage: 60 MG CYMBALTA  ONE TABLET EVERYDAY BY MOUTH (PO) APPROXIMATELY 1 YR
     Route: 048

REACTIONS (26)
  - CLUMSINESS [None]
  - CRYING [None]
  - DIZZINESS [None]
  - DRUG INEFFECTIVE [None]
  - DRUG WITHDRAWAL SYNDROME [None]
  - EMOTIONAL DISORDER [None]
  - EYE PAIN [None]
  - FEELING ABNORMAL [None]
  - FEELING COLD [None]
  - FEELING DRUNK [None]
  - HEADACHE [None]
  - HUNGER [None]
  - HYPERHIDROSIS [None]
  - HYPERPHAGIA [None]
  - IMPAIRED WORK ABILITY [None]
  - IRRITABILITY [None]
  - MOOD SWINGS [None]
  - NAUSEA [None]
  - NIGHT SWEATS [None]
  - NIGHTMARE [None]
  - PARAESTHESIA [None]
  - PHOTOPHOBIA [None]
  - PRURITUS [None]
  - SKIN BURNING SENSATION [None]
  - TINNITUS [None]
  - VERTIGO [None]
